FAERS Safety Report 8826559 (Version 1)
Quarter: 2012Q4

REPORT INFORMATION
  Report Type: 
  Country: ES (occurrence: ES)
  Receive Date: 20121005
  Receipt Date: 20121005
  Transmission Date: 20130627
  Serious: Yes (Death, Hospitalization)
  Sender: FDA-Public Use
  Company Number: PHHY2012ES086648

PATIENT
  Age: 73 Year
  Sex: Male

DRUGS (5)
  1. SINTROM [Suspect]
     Indication: ATRIAL FIBRILLATION
     Dosage: 4 mg,
     Route: 048
     Dates: end: 20120405
  2. FLUOXETINE [Interacting]
     Indication: DEPRESSION
     Dosage: 20 mg, daily
     Route: 048
     Dates: start: 2006, end: 20120405
  3. OMEPRAZOLE [Concomitant]
  4. DIGOXINE [Concomitant]
  5. FUROSEMIDE [Concomitant]

REACTIONS (9)
  - Death [Fatal]
  - Brain oedema [Not Recovered/Not Resolved]
  - Feeling abnormal [Not Recovered/Not Resolved]
  - Dysarthria [Not Recovered/Not Resolved]
  - Blood pressure increased [Not Recovered/Not Resolved]
  - Cerebral haemorrhage [Not Recovered/Not Resolved]
  - Cerebral haematoma [Not Recovered/Not Resolved]
  - International normalised ratio increased [Not Recovered/Not Resolved]
  - Drug interaction [Unknown]
